FAERS Safety Report 16021957 (Version 1)
Quarter: 2019Q1

REPORT INFORMATION
  Report Type: Spontaneous
  Country: IT (occurrence: IT)
  Receive Date: 20190301
  Receipt Date: 20190301
  Transmission Date: 20190418
  Serious: Yes (Hospitalization)
  Sender: FDA-Public Use
  Company Number: IT-SA-2019SA051757

PATIENT
  Age: 78 Year
  Sex: Male

DRUGS (4)
  1. LUVION [CANRENONE] [Concomitant]
     Route: 065
  2. WARFARIN SODIUM. [Suspect]
     Active Substance: WARFARIN SODIUM
     Indication: ATRIAL FIBRILLATION
     Dosage: 5 MG QD
     Route: 048
     Dates: start: 20160201, end: 20190212
  3. LASIX [Concomitant]
     Active Substance: FUROSEMIDE
     Route: 065
  4. PLAVIX [Suspect]
     Active Substance: CLOPIDOGREL BISULFATE
     Indication: ATRIAL FIBRILLATION
     Dosage: 75 MG QD
     Route: 048
     Dates: start: 20160201, end: 20190212

REACTIONS (3)
  - Haemorrhage [Recovering/Resolving]
  - Diverticulum [Recovering/Resolving]
  - Rectal haemorrhage [Recovering/Resolving]

NARRATIVE: CASE EVENT DATE: 20190212
